FAERS Safety Report 15562861 (Version 2)
Quarter: 2019Q1

REPORT INFORMATION
  Report Type: Spontaneous
  Country: US (occurrence: US)
  Receive Date: 20181029
  Receipt Date: 20190131
  Transmission Date: 20190417
  Serious: Yes (Life-Threatening)
  Sender: FDA-Public Use
  Company Number: US-PFIZER INC-2018433161

PATIENT
  Age: 53 Year
  Sex: Male

DRUGS (5)
  1. AMINOPHYLLINE. [Concomitant]
     Active Substance: AMINOPHYLLINE
     Indication: CHRONIC OBSTRUCTIVE PULMONARY DISEASE
     Dosage: 300 MG, 4X/DAY (EVERY SIX HOURS)
  2. LITHIUM CARBONATE. [Interacting]
     Active Substance: LITHIUM CARBONATE
     Indication: BIPOLAR I DISORDER
     Dosage: 300 MG, 3X/DAY
  3. INDOMETHACIN [INDOMETACIN] [Suspect]
     Active Substance: INDOMETHACIN
     Indication: ARTHRITIS
     Dosage: 50 MG, 4X/DAY (EVERY SIX HOURS)
  4. ZOMAX [ZOMEPIRAC SODIUM] [Concomitant]
     Dosage: 100 MG, 4X/DAY (EVERY SIX HOURS AS NEEDED)
  5. GUAIFENESIN. [Concomitant]
     Active Substance: GUAIFENESIN
     Dosage: 10 ML, 4X/DAY (EVERY SIX HOURS)

REACTIONS (2)
  - Toxicity to various agents [Recovered/Resolved]
  - Drug interaction [Unknown]
